FAERS Safety Report 8459056 (Version 3)
Quarter: 2015Q3

REPORT INFORMATION
  Report Type: Spontaneous
  Country: BR (occurrence: BR)
  Receive Date: 20120314
  Receipt Date: 20150710
  Transmission Date: 20151125
  Serious: Yes (Other)
  Sender: FDA-Public Use
  Company Number: BR-PFIZER INC-2012035920

PATIENT
  Age: 73 Year
  Sex: Female
  Weight: 54 kg

DRUGS (6)
  1. DIOVAN [Concomitant]
     Active Substance: VALSARTAN
     Indication: HYPERTENSION
     Dosage: 1 TABLET DAILY
  2. FRONTAL [Suspect]
     Active Substance: ALPRAZOLAM
     Indication: ANXIETY
  3. FRONTAL [Suspect]
     Active Substance: ALPRAZOLAM
     Indication: HYPERTENSION
     Dosage: 1 TABLET OF STRENGTH 0.5 MG, 2X/DAY
     Route: 048
     Dates: start: 2005
  4. FRONTAL XR [Suspect]
     Active Substance: ALPRAZOLAM
     Dosage: UNK
     Route: 048
     Dates: start: 2012, end: 2012
  5. FRONTAL [Suspect]
     Active Substance: ALPRAZOLAM
     Indication: NERVOUSNESS
  6. JANUVIA [Concomitant]
     Active Substance: SITAGLIPTIN PHOSPHATE
     Indication: DIABETES MELLITUS
     Dosage: 1 TABLET, DAILY

REACTIONS (7)
  - Drug ineffective [Unknown]
  - Drug dispensing error [Not Recovered/Not Resolved]
  - Panic disorder [Unknown]
  - Memory impairment [Unknown]
  - Blood pressure increased [Not Recovered/Not Resolved]
  - Nervousness [Not Recovered/Not Resolved]
  - Agitation [Unknown]

NARRATIVE: CASE EVENT DATE: 2012
